FAERS Safety Report 15256097 (Version 3)
Quarter: 2018Q4

REPORT INFORMATION
  Report Type: Spontaneous
  Country: US (occurrence: US)
  Receive Date: 20180808
  Receipt Date: 20181011
  Transmission Date: 20190204
  Serious: Yes (Other)
  Sender: FDA-Public Use
  Company Number: US-PFIZER INC-2018315479

PATIENT
  Age: 31 Year
  Sex: Female

DRUGS (2)
  1. PREDNISONE. [Suspect]
     Active Substance: PREDNISONE
     Indication: SARCOIDOSIS
     Dosage: 60 MG, DAILY (4-WEEK COURSE)
     Route: 048
  2. METHYLPREDNISOLONE SODIUM SUCCINATE. [Suspect]
     Active Substance: METHYLPREDNISOLONE SODIUM SUCCINATE
     Indication: SARCOIDOSIS
     Dosage: 1 G, 1X/DAY (HIGH DOSE, EVERY 24 HOURS)
     Route: 042

REACTIONS (5)
  - Hyperglycaemia [Unknown]
  - Insomnia [Unknown]
  - Ankle fracture [Unknown]
  - Osteonecrosis [Unknown]
  - Coordination abnormal [Unknown]
